FAERS Safety Report 9255691 (Version 1)
Quarter: 2013Q2

REPORT INFORMATION
  Report Type: Spontaneous
  Country: ZA (occurrence: ZA)
  Receive Date: 20130425
  Receipt Date: 20130425
  Transmission Date: 20140414
  Serious: Yes (Hospitalization)
  Sender: FDA-Public Use
  Company Number: PHHY2012ZA097087

PATIENT
  Sex: 0

DRUGS (3)
  1. OFLOXACIN [Suspect]
     Indication: TUBERCULOSIS
     Route: 048
  2. ETHIONAMIDE [Suspect]
     Indication: TUBERCULOSIS
  3. STREPTOMYCIN [Suspect]
     Indication: TUBERCULOSIS

REACTIONS (4)
  - Drug hypersensitivity [Unknown]
  - Genital pain [Unknown]
  - Pruritus [Unknown]
  - Erythema [Unknown]
